FAERS Safety Report 8422999-9 (Version None)
Quarter: 2012Q2

REPORT INFORMATION
  Report Type: 
  Country: None (occurrence: None)
  Receive Date: 20120608
  Receipt Date: 20120529
  Transmission Date: 20120825
  Serious: Yes (Other)
  Sender: FDA-Public Use
  Company Number: US-ELI_LILLY_AND_COMPANY-US201205006923

PATIENT
  Sex: Female
  Weight: 43.1 kg

DRUGS (4)
  1. MIRALAX [Concomitant]
     Indication: CONSTIPATION
  2. SOMATROPIN [Suspect]
     Dosage: 2.0 MG, QD
     Dates: end: 20110807
  3. SOMATROPIN [Suspect]
     Dosage: UNK
     Dates: start: 20120301
  4. SOMATROPIN [Suspect]
     Indication: GROWTH HORMONE DEFICIENCY
     Dosage: 1.7 MG, UNK
     Dates: start: 20100406

REACTIONS (1)
  - SUICIDAL IDEATION [None]
